FAERS Safety Report 6415077-1 (Version None)
Quarter: 2009Q4

REPORT INFORMATION
  Report Type: 
  Country: None (occurrence: None)
  Receive Date: 20091021
  Receipt Date: 20091007
  Transmission Date: 20100525
  Serious: No
  Sender: FDA-Public Use
  Company Number: 007415

PATIENT
  Sex: Male

DRUGS (2)
  1. PLETAL [Suspect]
     Indication: CAROTID ARTERY STENOSIS
     Dosage: BID ORAL
     Route: 048
     Dates: start: 20081101
  2. AGGRENOX [Concomitant]

REACTIONS (2)
  - CAROTID ARTERY OCCLUSION [None]
  - OFF LABEL USE [None]
